FAERS Safety Report 8417925-2 (Version None)
Quarter: 2012Q2

REPORT INFORMATION
  Report Type: 
  Country: None (occurrence: None)
  Receive Date: 20120601
  Receipt Date: 20120601
  Transmission Date: 20120825
  Serious: Yes (Hospitalization)
  Sender: FDA-Public Use
  Company Number: None

PATIENT
  Age: 80 Year
  Sex: Female
  Weight: 79.3795 kg

DRUGS (1)
  1. PRADAXA [Suspect]
     Indication: COAGULOPATHY
     Dosage: 1 CAPSULE TWICE DAILY
     Dates: start: 20110407, end: 20120202

REACTIONS (2)
  - GASTROINTESTINAL HAEMORRHAGE [None]
  - MALAISE [None]
